FAERS Safety Report 8771412 (Version 2)
Quarter: 2013Q1

REPORT INFORMATION
  Report Type: Spontaneous
  Country: US (occurrence: US)
  Receive Date: 20120906
  Receipt Date: 20130117
  Transmission Date: 20140127
  Serious: Yes (Hospitalization)
  Sender: FDA-Public Use
  Company Number: US-GLAXOSMITHKLINE-A0992189A

PATIENT
  Age: 30 Year
  Sex: Female

DRUGS (3)
  1. FLOLAN [Suspect]
     Indication: PRODUCT USED FOR UNKNOWN INDICATION
     Dosage: 30NGKM CONTINUOUS
     Route: 042
     Dates: start: 20120428
  2. LETAIRIS [Concomitant]
  3. COUMADIN [Concomitant]

REACTIONS (2)
  - Device related infection [Unknown]
  - Dermatitis contact [Unknown]
